FAERS Safety Report 12315979 (Version 2)
Quarter: 2016Q2

REPORT INFORMATION
  Report Type: Spontaneous
  Country: ES (occurrence: ES)
  Receive Date: 20160428
  Receipt Date: 20160516
  Transmission Date: 20160815
  Serious: Yes (Hospitalization, Other)
  Sender: FDA-Public Use
  Company Number: ES-BIOGEN-2016BI00228477

PATIENT
  Age: 49 Year
  Sex: Female

DRUGS (1)
  1. TECFIDERA [Suspect]
     Active Substance: DIMETHYL FUMARATE
     Indication: MULTIPLE SCLEROSIS
     Route: 065
     Dates: start: 2015

REACTIONS (5)
  - Central nervous system lesion [Unknown]
  - Cerebral ischaemia [Unknown]
  - Neurological symptom [Recovered/Resolved]
  - Aphasia [Recovered/Resolved]
  - Neurological symptom [Unknown]

NARRATIVE: CASE EVENT DATE: 2015
